FAERS Safety Report 10021401 (Version 1)
Quarter: 2014Q1

REPORT INFORMATION
  Report Type: Spontaneous
  Country: US (occurrence: None)
  Receive Date: 20140318
  Receipt Date: 20140318
  Transmission Date: 20141002
  Serious: Yes (Other)
  Sender: FDA-Public Use
  Company Number: None

PATIENT
  Age: 39 Year
  Sex: Female
  Weight: 63.5 kg

DRUGS (2)
  1. LEVAQUIN [Suspect]
     Indication: CHRONIC SINUSITIS
     Dosage: 1 PILL
     Route: 048
     Dates: start: 20140313, end: 20140316
  2. LEVAQUIN [Suspect]
     Indication: EAR INFECTION
     Dosage: 1 PILL
     Route: 048
     Dates: start: 20140313, end: 20140316

REACTIONS (14)
  - Hyperhidrosis [None]
  - Nightmare [None]
  - Sleep disorder [None]
  - Dizziness [None]
  - Feeling abnormal [None]
  - Gastric dilatation [None]
  - Asthenia [None]
  - Pain in extremity [None]
  - Gait disturbance [None]
  - Myalgia [None]
  - Gait disturbance [None]
  - Malaise [None]
  - Paraesthesia [None]
  - Pain [None]
